FAERS Safety Report 10488729 (Version 1)
Quarter: 2014Q4

REPORT INFORMATION
  Report Type: Spontaneous
  Country: US (occurrence: None)
  Receive Date: 20141001
  Receipt Date: 20141001
  Transmission Date: 20150528
  Serious: Yes (Other)
  Sender: FDA-Public Use
  Company Number: None

PATIENT
  Age: 57 Year
  Sex: Female
  Weight: 100.25 kg

DRUGS (1)
  1. CARBOPLATIN 600MG HOSPIRA [Suspect]
     Active Substance: CARBOPLATIN
     Indication: BREAST CANCER
     Route: 042

REACTIONS (6)
  - Thirst [None]
  - Nausea [None]
  - Pruritus [None]
  - Rash [None]
  - Tongue pruritus [None]
  - Blood pressure decreased [None]

NARRATIVE: CASE EVENT DATE: 20140929
